FAERS Safety Report 6676677-7 (Version None)
Quarter: 2010Q1

REPORT INFORMATION
  Report Type: 
  Country: None (occurrence: None)
  Receive Date: 20100331
  Receipt Date: 20090405
  Transmission Date: 20100710
  Serious: Yes (Hospitalization)
  Sender: FDA-Public Use
  Company Number: 2009173051

PATIENT
  Sex: Female

DRUGS (3)
  1. SUTENT [Suspect]
     Indication: RENAL CELL CARCINOMA
  2. PREDNISONE TAB [Concomitant]
  3. ETANERCEPT (ETANERCEPT) [Concomitant]

REACTIONS (1)
  - PANCYTOPENIA [None]
